FAERS Safety Report 14193137 (Version 1)
Quarter: 2017Q4

REPORT INFORMATION
  Report Type: Spontaneous
  Country: US (occurrence: US)
  Receive Date: 20171115
  Receipt Date: 20171115
  Transmission Date: 20180321
  Serious: No
  Sender: FDA-Public Use
  Company Number: US-BAUSCH-BL-2016-027100

PATIENT
  Age: 61 Year
  Sex: Male
  Weight: 71.73 kg

DRUGS (1)
  1. XENAZINE [Suspect]
     Active Substance: TETRABENAZINE
     Indication: HUNTINGTON^S DISEASE
     Dosage: ONE TABLET IN THE MORNING AND HALF A TABLET AT BEDTIME
     Route: 065
     Dates: start: 201501

REACTIONS (5)
  - Dizziness postural [Unknown]
  - Insomnia [Unknown]
  - Anxiety [Unknown]
  - Mood altered [Unknown]
  - Decreased appetite [Unknown]

NARRATIVE: CASE EVENT DATE: 20160822
